FAERS Safety Report 7275510-2 (Version None)
Quarter: 2011Q1

REPORT INFORMATION
  Report Type: 
  Country: None (occurrence: None)
  Receive Date: 20110204
  Receipt Date: 20110124
  Transmission Date: 20110831
  Serious: Yes (Life-Threatening, Hospitalization, Disabling)
  Sender: FDA-Public Use
  Company Number: NL-CELGENEUS-114-20785-10100933

PATIENT
  Sex: Male

DRUGS (12)
  1. HYDROCHLOROTHIAZIDE [Concomitant]
     Indication: HYPERTENSION
     Route: 048
     Dates: start: 20090101, end: 20101005
  2. METFORMIN [Concomitant]
     Route: 048
     Dates: start: 20060101, end: 20101022
  3. NIFEDIPINE [Concomitant]
     Indication: HYPERTENSION
     Route: 048
     Dates: start: 20060101, end: 20101005
  4. PREDNISONE [Suspect]
     Indication: MULTIPLE MYELOMA
     Route: 048
     Dates: start: 20100914, end: 20100917
  5. CARDURA [Concomitant]
     Indication: HYPERTENSION
     Route: 048
     Dates: start: 20090101, end: 20101005
  6. CRESTOR [Concomitant]
     Route: 048
     Dates: start: 20060101, end: 20101022
  7. PERINDOPRIL [Concomitant]
     Indication: CARDIAC DISORDER
     Route: 048
     Dates: start: 20100126, end: 20101022
  8. THALIDOMIDE [Suspect]
     Indication: MULTIPLE MYELOMA
     Route: 048
     Dates: start: 20100525
  9. THALIDOMIDE [Suspect]
     Route: 048
     Dates: start: 20100914, end: 20101004
  10. ACENOCOUMAROL [Concomitant]
     Route: 048
     Dates: start: 20070101, end: 20101022
  11. METOPROLOL TARTRATE [Concomitant]
     Indication: HYPERTENSION
     Route: 048
     Dates: start: 20060101, end: 20101022
  12. MELPHALAN [Suspect]
     Indication: MULTIPLE MYELOMA
     Route: 048
     Dates: start: 20100914, end: 20100917

REACTIONS (3)
  - POLYNEUROPATHY [None]
  - PNEUMONIA STREPTOCOCCAL [None]
  - STREPTOCOCCAL SEPSIS [None]
